FAERS Safety Report 19515796 (Version 2)
Quarter: 2021Q3

REPORT INFORMATION
  Report Type: Spontaneous
  Country: US (occurrence: US)
  Receive Date: 20210710
  Receipt Date: 20210722
  Transmission Date: 20211014
  Serious: Yes (Death, Life-Threatening, Hospitalization, Other)
  Sender: FDA-Public Use
  Company Number: US-UNITED THERAPEUTICS-UNT-2021-012003

PATIENT
  Age: 53 Year
  Sex: Female
  Weight: 77.1 kg

DRUGS (5)
  1. AMBRISENTAN [Concomitant]
     Active Substance: AMBRISENTAN
     Indication: PRODUCT USED FOR UNKNOWN INDICATION
     Dosage: UNK
     Route: 065
  2. REMODULIN [Suspect]
     Active Substance: TREPROSTINIL
     Dosage: UNK UNK, CONTINUING (INCREASED DOSE)
     Route: 041
     Dates: start: 202106
  3. TADALAFIL. [Concomitant]
     Active Substance: TADALAFIL
     Indication: PRODUCT USED FOR UNKNOWN INDICATION
     Dosage: UNK
     Route: 065
  4. REMODULIN [Suspect]
     Active Substance: TREPROSTINIL
     Dosage: 0.044 ?G/KG, CONTINUING
     Route: 041
     Dates: start: 202106
  5. REMODULIN [Suspect]
     Active Substance: TREPROSTINIL
     Indication: PULMONARY ARTERIAL HYPERTENSION
     Dosage: UNK, CONTINUING
     Route: 041
     Dates: start: 20210621

REACTIONS (16)
  - Cardiac disorder [Unknown]
  - Fluid retention [Not Recovered/Not Resolved]
  - Oedema peripheral [Not Recovered/Not Resolved]
  - Headache [Not Recovered/Not Resolved]
  - Pain [Not Recovered/Not Resolved]
  - Diarrhoea [Not Recovered/Not Resolved]
  - Overdose [Unknown]
  - Pericardial effusion [Not Recovered/Not Resolved]
  - Sleep apnoea syndrome [Unknown]
  - Muscle spasms [Recovered/Resolved]
  - Death [Fatal]
  - Pulseless electrical activity [Unknown]
  - Brain injury [Unknown]
  - Hypotension [Recovered/Resolved]
  - Dependence [Unknown]
  - Pain in jaw [Not Recovered/Not Resolved]

NARRATIVE: CASE EVENT DATE: 202106
